FAERS Safety Report 5911031-4 (Version None)
Quarter: 2008Q4

REPORT INFORMATION
  Report Type: 
  Country: None (occurrence: None)
  Receive Date: 20081007
  Receipt Date: 20080924
  Transmission Date: 20090506
  Serious: Yes (Hospitalization)
  Sender: FDA-Public Use
  Company Number: US-JNJFOC-20080906279

PATIENT
  Sex: Female
  Weight: 72.58 kg

DRUGS (4)
  1. TOPAMAX [Suspect]
     Indication: MIGRAINE PROPHYLAXIS
     Route: 048
  2. LEVAQUIN [Concomitant]
     Indication: SURGERY
  3. FLAGYL [Concomitant]
     Indication: SURGERY
  4. MORPHINE [Concomitant]
     Indication: PAIN

REACTIONS (4)
  - APPENDICECTOMY [None]
  - DISTURBANCE IN ATTENTION [None]
  - DYSKINESIA [None]
  - GAIT DISTURBANCE [None]
